FAERS Safety Report 9599946 (Version 1)
Quarter: 2013Q4

REPORT INFORMATION
  Report Type: Spontaneous
  Country: US (occurrence: US)
  Receive Date: 20131004
  Receipt Date: 20131004
  Transmission Date: 20140711
  Serious: No
  Sender: FDA-Public Use
  Company Number: US-AMGEN-USASP2013032004

PATIENT
  Age: 48 Year
  Sex: Female
  Weight: 85.26 kg

DRUGS (4)
  1. ENBREL [Suspect]
     Indication: RHEUMATOID ARTHRITIS
     Dosage: 50 MG, QWK
     Route: 058
     Dates: start: 20130426
  2. PREDNISONE [Concomitant]
     Dosage: 5 MG, Q24 H
     Route: 048
     Dates: start: 2009
  3. PLAQUENIL                          /00072602/ [Concomitant]
     Dosage: 200 MG, Q12H
     Route: 048
     Dates: start: 2009
  4. METHOTREXATE [Concomitant]
     Dosage: 20 MG, QWK
     Route: 048
     Dates: start: 2009

REACTIONS (2)
  - Influenza like illness [Not Recovered/Not Resolved]
  - Chills [Not Recovered/Not Resolved]
